FAERS Safety Report 6074594-7 (Version None)
Quarter: 2009Q1

REPORT INFORMATION
  Report Type: 
  Country: None (occurrence: None)
  Receive Date: 20090209
  Receipt Date: 20090129
  Transmission Date: 20090719
  Serious: Yes (Other)
  Sender: FDA-Public Use
  Company Number: 114731

PATIENT
  Age: 17 Year
  Sex: Male

DRUGS (4)
  1. ACETAMINOPHEN [Suspect]
     Indication: SUICIDE ATTEMPT
     Dosage: 37,500 MG/ONCE/ORAL
     Route: 048
     Dates: start: 20090129, end: 20090129
  2. LAMICTAL [Concomitant]
  3. TETRACYCLINE [Concomitant]
  4. DEPRESSION MEDICATION [Concomitant]

REACTIONS (2)
  - FLAT AFFECT [None]
  - INCORRECT DOSE ADMINISTERED [None]
